FAERS Safety Report 25439603 (Version 1)
Quarter: 2025Q2

REPORT INFORMATION
  Report Type: Spontaneous
  Country: AU (occurrence: None)
  Receive Date: 20250613
  Receipt Date: 20250613
  Transmission Date: 20250716
  Serious: Yes (Life-Threatening, Hospitalization, Disabling, Other)
  Sender: FDA-CTU
  Company Number: None

PATIENT
  Age: 56 Year
  Sex: Female
  Weight: 57 kg

DRUGS (3)
  1. PAXIL [Suspect]
     Active Substance: PAROXETINE HYDROCHLORIDE
     Indication: Postpartum anxiety
  2. ZOLOFT [Suspect]
     Active Substance: SERTRALINE HYDROCHLORIDE
  3. MIRTAZAPINE [Concomitant]
     Active Substance: MIRTAZAPINE

REACTIONS (21)
  - Postpartum anxiety [None]
  - Insomnia [None]
  - Condition aggravated [None]
  - Drug ineffective [None]
  - Emotional distress [None]
  - Agitation [None]
  - Suicidal ideation [None]
  - Crying [None]
  - Fear [None]
  - Emotional distress [None]
  - Dissociation [None]
  - Flat affect [None]
  - Anorgasmia [None]
  - Dizziness [None]
  - Vertigo [None]
  - Weight decreased [None]
  - Drug withdrawal syndrome [None]
  - Sleep terror [None]
  - Drug tolerance [None]
  - Drug dependence [None]
  - Pollakiuria [None]

NARRATIVE: CASE EVENT DATE: 20041204
